FAERS Safety Report 4374403-8 (Version None)
Quarter: 2004Q2

REPORT INFORMATION
  Report Type: 
  Country: None (occurrence: None)
  Receive Date: 20040602
  Receipt Date: 20040330
  Transmission Date: 20050107
  Serious: No
  Sender: FDA-Public Use
  Company Number: 200417027BWH

PATIENT
  Age: 72 Year
  Sex: Male
  Weight: 83.9154 kg

DRUGS (9)
  1. LEVITRA [Suspect]
     Indication: ERECTILE DYSFUNCTION
     Dosage: SEE IMAGE
     Route: 048
  2. . [Concomitant]
  3. . [Concomitant]
  4. . [Concomitant]
  5. LISINOPRIL [Concomitant]
  6. SIMVASTATIN [Concomitant]
  7. VITAMIN E [Concomitant]
  8. SINGULAIR [Concomitant]
  9. SEREVENT [Concomitant]

REACTIONS (1)
  - ERECTILE DYSFUNCTION [None]
